FAERS Safety Report 10430824 (Version 1)
Quarter: 2014Q3

REPORT INFORMATION
  Report Type: Spontaneous
  Country: US (occurrence: US)
  Receive Date: 20140904
  Receipt Date: 20140904
  Transmission Date: 20150326
  Serious: Yes (Disabling)
  Sender: FDA-Public Use
  Company Number: US-GILEAD-2014-0114191

PATIENT
  Age: 73 Year
  Sex: Female

DRUGS (1)
  1. LETAIRIS [Suspect]
     Active Substance: AMBRISENTAN
     Indication: PRODUCT USED FOR UNKNOWN INDICATION
     Dosage: 10 MG, QD
     Route: 065
     Dates: start: 20120208

REACTIONS (8)
  - Gait disturbance [Unknown]
  - Dizziness [Unknown]
  - Nausea [Unknown]
  - Unevaluable event [Unknown]
  - Movement disorder [Unknown]
  - Oxygen saturation abnormal [Unknown]
  - Oxygen saturation decreased [Unknown]
  - Depression [Unknown]
